FAERS Safety Report 8902055 (Version 3)
Quarter: 2013Q1

REPORT INFORMATION
  Report Type: Spontaneous
  Country: US (occurrence: US)
  Receive Date: 20121112
  Receipt Date: 20130212
  Transmission Date: 20140127
  Serious: Yes (Other)
  Sender: FDA-Public Use
  Company Number: US-ELI_LILLY_AND_COMPANY-US201211000519

PATIENT
  Age: 16 Year
  Sex: Male
  Weight: 72.47 kg

DRUGS (3)
  1. HUMALOG LISPRO [Suspect]
     Indication: TYPE 1 DIABETES MELLITUS
     Dosage: UNK
     Route: 058
     Dates: start: 20070410
  2. GLUCAGON [Suspect]
     Indication: HYPOGLYCAEMIA
     Dosage: 0.8 MG, SINGLE
     Route: 030
     Dates: start: 20121026
  3. GLUCAGON [Suspect]
     Dosage: UNK, PRN

REACTIONS (12)
  - Grand mal convulsion [Recovered/Resolved]
  - Hypoglycaemic unconsciousness [Recovered/Resolved]
  - Head injury [Recovered/Resolved]
  - Laceration [Recovered/Resolved]
  - Headache [Recovered/Resolved]
  - Nausea [Recovered/Resolved]
  - Haemorrhage [Recovered/Resolved]
  - Somnolence [Recovered/Resolved]
  - Blood glucose increased [Recovered/Resolved]
  - Hypoglycaemia [Recovered/Resolved]
  - Haematoma [Recovered/Resolved]
  - Excoriation [Recovered/Resolved]
